FAERS Safety Report 11521402 (Version 3)
Quarter: 2015Q4

REPORT INFORMATION
  Report Type: Report from Study
  Country: CN (occurrence: CN)
  Receive Date: 20150918
  Receipt Date: 20151218
  Transmission Date: 20160304
  Serious: Yes (Death, Hospitalization)
  Sender: FDA-Public Use
  Company Number: CN-BAYER-2015-398653

PATIENT
  Age: 59 Year
  Sex: Male
  Weight: 58.2 kg

DRUGS (12)
  1. ADEMETIONINE [Concomitant]
     Active Substance: ADEMETIONINE
     Indication: BLOOD BILIRUBIN INCREASED
     Dosage: 1000 MG, QD
     Route: 048
     Dates: start: 20150724, end: 20150808
  2. REGORAFENIB [Suspect]
     Active Substance: REGORAFENIB
     Indication: COLORECTAL CANCER STAGE IV
     Dosage: 160MG DAILY
     Route: 048
     Dates: start: 20150709, end: 20150709
  3. REGORAFENIB [Suspect]
     Active Substance: REGORAFENIB
     Indication: COLORECTAL CANCER STAGE IV
     Dosage: 160MG DAILY
     Route: 048
     Dates: start: 20150716, end: 20150805
  4. OXYCODONE [Concomitant]
     Active Substance: OXYCODONE
     Indication: NECK PAIN
     Dosage: 1 TABLET Q6H
     Route: 048
     Dates: start: 20150601, end: 20150708
  5. ACETAMINOPHEN. [Concomitant]
     Active Substance: ACETAMINOPHEN
     Indication: NECK PAIN
     Dosage: 1 TABLET Q6H
     Route: 048
     Dates: start: 20150601, end: 20150708
  6. MORPHINE [Concomitant]
     Active Substance: MORPHINE
     Indication: NECK PAIN
     Dosage: 1 DF, PRN
     Route: 048
     Dates: start: 20150715, end: 20150826
  7. VALSARTAN. [Concomitant]
     Active Substance: VALSARTAN
     Indication: HYPERTENSION
     Dosage: 1 DF, QD
     Route: 048
     Dates: start: 20150725, end: 20150728
  8. LOPERAMIDE [Concomitant]
     Active Substance: LOPERAMIDE
     Indication: DIARRHOEA
     Dosage: 2 TABLETS FIRST DOSE, THAN 1 TABLET Q2H
     Route: 048
     Dates: start: 20150804, end: 20150805
  9. VALSARTAN. [Concomitant]
     Active Substance: VALSARTAN
     Indication: HYPERTENSION
     Dosage: 1 DF, BID
     Route: 048
     Dates: start: 20150729, end: 20150808
  10. REGORAFENIB [Suspect]
     Active Substance: REGORAFENIB
     Indication: COLORECTAL CANCER STAGE IV
     Dosage: 120MG DAILY
     Route: 048
     Dates: start: 20150819, end: 20150908
  11. OXYCONTIN [Concomitant]
     Active Substance: OXYCODONE HYDROCHLORIDE
     Indication: NECK PAIN
     Dosage: 1 TABLET Q12H
     Route: 048
     Dates: start: 20150709
  12. DIAZEPAM. [Concomitant]
     Active Substance: DIAZEPAM
     Indication: INSOMNIA
     Dosage: 2 DF, PRN
     Route: 048
     Dates: start: 20150301, end: 20150826

REACTIONS (2)
  - Small intestinal obstruction [Recovered/Resolved]
  - Cerebrovascular accident [Fatal]

NARRATIVE: CASE EVENT DATE: 20150811
